FAERS Safety Report 21176488 (Version 1)
Quarter: 2022Q3

REPORT INFORMATION
  Report Type: Spontaneous
  Country: US (occurrence: US)
  Receive Date: 20220805
  Receipt Date: 20220805
  Transmission Date: 20221027
  Serious: No
  Sender: FDA-Public Use
  Company Number: US-ALLERGAN-2215400US

PATIENT
  Sex: Female

DRUGS (1)
  1. VUITY [Suspect]
     Active Substance: PILOCARPINE HYDROCHLORIDE
     Indication: Presbyopia
     Dosage: UNK
     Dates: start: 20220325

REACTIONS (6)
  - Ocular myasthenia [Not Recovered/Not Resolved]
  - Conjunctival oedema [Unknown]
  - Scleritis [Unknown]
  - Giant papillary conjunctivitis [Unknown]
  - Myasthenia gravis [Unknown]
  - Eye irritation [Unknown]
